FAERS Safety Report 19372502 (Version 3)
Quarter: 2021Q3

REPORT INFORMATION
  Report Type: Spontaneous
  Country: US (occurrence: US)
  Receive Date: 20210604
  Receipt Date: 20210809
  Transmission Date: 20211014
  Serious: No
  Sender: FDA-Public Use
  Company Number: US-ELI_LILLY_AND_COMPANY-US202105011323

PATIENT
  Age: 73 Year
  Sex: Male

DRUGS (12)
  1. HUMALOG [Suspect]
     Active Substance: INSULIN LISPRO
     Dosage: 10 U, UNKNOWN
     Route: 058
  2. HUMALOG [Suspect]
     Active Substance: INSULIN LISPRO
     Dosage: 10 U, UNKNOWN
     Route: 058
  3. SHINGRIX [Suspect]
     Active Substance: RECOMBINANT VARICELLA ZOSTER VIRUS (VZV) GLYCOPROTEIN E
     Indication: PRODUCT USED FOR UNKNOWN INDICATION
     Dosage: UNK UNK, UNKNOWN
     Route: 065
  4. HUMALOG [Suspect]
     Active Substance: INSULIN LISPRO
     Indication: TYPE 1 DIABETES MELLITUS
     Dosage: 10 U, UNKNOWN
     Route: 058
  5. HUMALOG [Suspect]
     Active Substance: INSULIN LISPRO
     Dosage: 10 U, UNKNOWN
     Route: 058
  6. HUMALOG [Suspect]
     Active Substance: INSULIN LISPRO
     Dosage: 10 U, UNKNOWN
     Route: 058
  7. HUMALOG [Suspect]
     Active Substance: INSULIN LISPRO
     Indication: TYPE 1 DIABETES MELLITUS
     Dosage: 10 U, UNKNOWN
     Route: 058
  8. HUMALOG [Suspect]
     Active Substance: INSULIN LISPRO
     Indication: TYPE 1 DIABETES MELLITUS
     Dosage: 10 U, UNKNOWN
     Route: 058
  9. HUMALOG [Suspect]
     Active Substance: INSULIN LISPRO
     Dosage: 10 U, UNKNOWN
     Route: 058
  10. HUMALOG [Suspect]
     Active Substance: INSULIN LISPRO
     Indication: TYPE 1 DIABETES MELLITUS
     Dosage: 10 U, UNKNOWN
     Route: 058
  11. METFORMIN [Concomitant]
     Active Substance: METFORMIN HYDROCHLORIDE
     Indication: PRODUCT USED FOR UNKNOWN INDICATION
  12. HUMALOG [Suspect]
     Active Substance: INSULIN LISPRO
     Dosage: 10 U, UNKNOWN
     Route: 058

REACTIONS (7)
  - Feeling abnormal [Unknown]
  - Blood glucose abnormal [Recovered/Resolved]
  - Limb discomfort [Unknown]
  - Macular degeneration [Unknown]
  - Hypoacusis [Unknown]
  - Injection site haemorrhage [Unknown]
  - Incorrect dose administered [Unknown]

NARRATIVE: CASE EVENT DATE: 20210521
